FAERS Safety Report 25919392 (Version 1)
Quarter: 2025Q4

REPORT INFORMATION
  Report Type: Spontaneous
  Country: US (occurrence: US)
  Receive Date: 20251014
  Receipt Date: 20251014
  Transmission Date: 20260117
  Serious: Yes (Other)
  Sender: INVENTIA HEALTHCARE LTD
  Company Number: US-IHL-000688

PATIENT

DRUGS (1)
  1. PALIPERIDONE [Suspect]
     Active Substance: PALIPERIDONE
     Indication: Product used for unknown indication
     Dosage: 1 PER NIGHT
     Route: 065
     Dates: start: 202502

REACTIONS (9)
  - Peripheral swelling [Unknown]
  - Arthralgia [Unknown]
  - Abdominal pain upper [Unknown]
  - Back pain [Unknown]
  - Restlessness [Unknown]
  - Insomnia [Unknown]
  - Myalgia [Unknown]
  - Muscular weakness [Unknown]
  - Lethargy [Unknown]

NARRATIVE: CASE EVENT DATE: 20250901
